FAERS Safety Report 7741951-X (Version None)
Quarter: 2011Q3

REPORT INFORMATION
  Report Type: 
  Country: None (occurrence: None)
  Receive Date: 20110907
  Receipt Date: 20110907
  Transmission Date: 20111222
  Serious: Yes (Hospitalization)
  Sender: FDA-Public Use
  Company Number: None

PATIENT
  Sex: Female
  Weight: 68 kg

DRUGS (4)
  1. LEVOTHYROXINE SODIUM [Concomitant]
  2. OLMESARTAN-HYDROCHLORIDE [Concomitant]
  3. FEMARA [Suspect]
     Dosage: 52.5 MG
     Dates: end: 20110901
  4. EZETIMIBE/SIMVASTATIN [Concomitant]

REACTIONS (6)
  - ABDOMINAL DISCOMFORT [None]
  - CONFUSIONAL STATE [None]
  - SYNCOPE [None]
  - NAUSEA [None]
  - DECREASED APPETITE [None]
  - HYPOTENSION [None]
